FAERS Safety Report 9747546 (Version 1)
Quarter: 2013Q4

REPORT INFORMATION
  Report Type: Report from Study
  Country: GB (occurrence: GB)
  Receive Date: 20131212
  Receipt Date: 20131212
  Transmission Date: 20140711
  Serious: Yes (Hospitalization)
  Sender: FDA-Public Use
  Company Number: GB-AMGEN-GBRCT2013086670

PATIENT
  Age: 22 Year
  Sex: Male
  Weight: 96 kg

DRUGS (3)
  1. ETANERCEPT [Suspect]
     Indication: PRODUCT USED FOR UNKNOWN INDICATION
     Dosage: 50 MG, ONCE WEEKLY
     Route: 065
     Dates: start: 20100118
  2. DIPROSALIC [Concomitant]
     Dosage: UNK
     Dates: start: 20100601
  3. HYDROXYZINE [Concomitant]
     Dosage: UNK
     Dates: start: 20100118

REACTIONS (1)
  - Autoimmune hepatitis [Recovered/Resolved with Sequelae]
